FAERS Safety Report 11114618 (Version 1)
Quarter: 2015Q2

REPORT INFORMATION
  Report Type: Spontaneous
  Country: US (occurrence: US)
  Receive Date: 20150515
  Receipt Date: 20150515
  Transmission Date: 20150821
  Serious: Yes (Other)
  Sender: FDA-Public Use
  Company Number: US-BEH-2014041776

PATIENT
  Age: 60 Year
  Sex: Male

DRUGS (3)
  1. IVIG [Suspect]
     Active Substance: HUMAN IMMUNOGLOBULIN G
     Indication: ENCEPHALITIS AUTOIMMUNE
     Dosage: 2G/KG FOR 5 DAYS
  2. IVIG [Suspect]
     Active Substance: HUMAN IMMUNOGLOBULIN G
     Dosage: 4 DAY COURSE
  3. IV METHYLPREDNISOLONE [Concomitant]
     Indication: ENCEPHALITIS AUTOIMMUNE

REACTIONS (3)
  - Drug effect decreased [Recovering/Resolving]
  - Drug ineffective for unapproved indication [Recovering/Resolving]
  - Encephalitis [Recovering/Resolving]
